FAERS Safety Report 13171646 (Version 1)
Quarter: 2017Q1

REPORT INFORMATION
  Report Type: Spontaneous
  Country: US (occurrence: US)
  Receive Date: 20170131
  Receipt Date: 20170131
  Transmission Date: 20170428
  Serious: No
  Sender: FDA-Public Use
  Company Number: US-ABBVIE-16K-163-1753474-00

PATIENT
  Age: 30 Year
  Sex: Female
  Weight: 61.29 kg

DRUGS (1)
  1. HUMIRA [Suspect]
     Active Substance: ADALIMUMAB
     Indication: CROHN^S DISEASE
     Route: 058
     Dates: start: 2013

REACTIONS (9)
  - Diarrhoea [Recovered/Resolved]
  - Injection site pruritus [Recovered/Resolved]
  - Eating disorder [Recovering/Resolving]
  - Oropharyngeal pain [Recovering/Resolving]
  - Injection site swelling [Recovered/Resolved]
  - Pharyngitis streptococcal [Unknown]
  - Hyperhidrosis [Recovering/Resolving]
  - Injection site swelling [Recovered/Resolved]
  - Haematochezia [Recovered/Resolved]

NARRATIVE: CASE EVENT DATE: 2013
